FAERS Safety Report 5427936-7 (Version None)
Quarter: 2007Q3

REPORT INFORMATION
  Report Type: 
  Country: None (occurrence: None)
  Receive Date: 20070828
  Receipt Date: 20070816
  Transmission Date: 20080115
  Serious: Yes (Other)
  Sender: FDA-Public Use
  Company Number: US-GILEAD-2007-0013074

PATIENT
  Sex: Male

DRUGS (4)
  1. TRUVADA [Suspect]
     Dates: end: 20070101
  2. REYATAZ [Concomitant]
  3. NORVIR [Concomitant]
  4. LEXIVA [Concomitant]

REACTIONS (3)
  - BLOOD BILIRUBIN INCREASED [None]
  - HAEMANGIOMA OF LIVER [None]
  - YELLOW SKIN [None]
